FAERS Safety Report 5641709-1 (Version None)
Quarter: 2008Q1

REPORT INFORMATION
  Report Type: 
  Country: None (occurrence: None)
  Receive Date: 20080227
  Receipt Date: 20080215
  Transmission Date: 20080703
  Serious: Yes (Death)
  Sender: FDA-Public Use
  Company Number: US-WYE-H02800108

PATIENT
  Age: 44 Year
  Sex: Male

DRUGS (6)
  1. TIGECYCLINE [Suspect]
     Indication: MULTIPLE-DRUG RESISTANCE
     Dosage: 100MG LOADING DOSE THEN 50MG EVERY 12 HOURS
     Route: 042
  2. TIGECYCLINE [Suspect]
     Indication: PNEUMONIA KLEBSIELLA
  3. TIGECYCLINE [Suspect]
     Indication: MEDIASTINITIS
  4. TIGECYCLINE [Suspect]
     Indication: AORTIC ANEURYSM
  5. COLISTIN SULFATE [Concomitant]
     Dosage: UNKNOWN
  6. MEROPENEM [Concomitant]
     Dosage: UNKNOWN

REACTIONS (3)
  - AORTIC RUPTURE [None]
  - DRUG INEFFECTIVE [None]
  - PNEUMONIA KLEBSIELLA [None]
